FAERS Safety Report 8889740 (Version 1)
Quarter: 2012Q4

REPORT INFORMATION
  Report Type: 
  Country: US (occurrence: US)
  Receive Date: 20121107
  Receipt Date: 20121107
  Transmission Date: 20130627
  Serious: Yes (Death)
  Sender: FDA-Public Use
  Company Number: US-INCYTE CORPORATION-2012IN001571

PATIENT
  Sex: Male

DRUGS (13)
  1. JAKAFI [Suspect]
     Indication: ESSENTIAL THROMBOCYTHAEMIA
     Dosage: 10 mg, bid
     Route: 048
     Dates: start: 20120323, end: 2012
  2. JAKAFI [Suspect]
     Indication: MYELOFIBROSIS
  3. SYNTHROID [Concomitant]
     Dosage: 50 mcg, unknown frequency
  4. PRILOSEC [Concomitant]
     Dosage: 20 mg, unknown frequency
  5. FUROSEMIDE [Concomitant]
     Dosage: 20 mg, unknown frequency
  6. COREG [Concomitant]
     Dosage: 3.125 mg, unknown frequency
  7. ALLOPURINOL [Concomitant]
     Dosage: 300 mg, unknown frequency
  8. FLOMAX [Concomitant]
     Dosage: 0.4 mg, unknown frequency
  9. DIOVAN [Concomitant]
     Dosage: 320 mg, unknown frequency
  10. ZOCOR [Concomitant]
     Dosage: 20 mg, unknown frequency
  11. ASPIRIN [Concomitant]
     Dosage: 81 mg, unknown frquency
  12. METAMUCIL [Concomitant]
  13. HYDROCODONE [Concomitant]
     Indication: PAIN

REACTIONS (1)
  - Disease progression [Fatal]
